FAERS Safety Report 13483910 (Version 1)
Quarter: 2017Q2

REPORT INFORMATION
  Report Type: Spontaneous
  Country: US (occurrence: US)
  Receive Date: 20170425
  Receipt Date: 20170425
  Transmission Date: 20170830
  Serious: No
  Sender: FDA-Public Use
  Company Number: None

PATIENT
  Age: 60 Year
  Sex: Female
  Weight: 67.5 kg

DRUGS (1)
  1. DESVENLAFAXINE SUCCINATE. [Suspect]
     Active Substance: DESVENLAFAXINE SUCCINATE
     Indication: DEPRESSION
     Dates: start: 20170405, end: 20170425

REACTIONS (5)
  - Nausea [None]
  - Apathy [None]
  - Product substitution issue [None]
  - Depressive symptom [None]
  - Fatigue [None]

NARRATIVE: CASE EVENT DATE: 20170425
